FAERS Safety Report 22638862 (Version 3)
Quarter: 2023Q4

REPORT INFORMATION
  Report Type: Report from Study
  Country: US (occurrence: US)
  Receive Date: 20230626
  Receipt Date: 20231018
  Transmission Date: 20240110
  Serious: Yes (Other)
  Sender: FDA-Public Use
  Company Number: US-ACADIA PHARMACEUTICALS INC.-ACA-2023-PIM-002184

PATIENT
  Age: 83 Year
  Sex: Female

DRUGS (14)
  1. NUPLAZID [Suspect]
     Active Substance: PIMAVANSERIN TARTRATE
     Indication: Parkinson^s disease
     Dosage: 20 MILLIGRAM, QD
     Route: 048
  2. NUPLAZID [Suspect]
     Active Substance: PIMAVANSERIN TARTRATE
     Indication: Parkinson^s disease psychosis
     Dosage: 10 MILLIGRAM, QD
     Route: 048
  3. MIRTAZAPINE [Suspect]
     Active Substance: MIRTAZAPINE
     Indication: Parkinson^s disease
     Dosage: 7.5 MILLIGRAM
     Dates: start: 202305
  4. FOSAMAX [Concomitant]
     Active Substance: ALENDRONATE SODIUM
     Dosage: 70 MILLIGRAM, TAKE 1 TABLET BY MOUTH EVERY 7 DAYS
     Route: 048
  5. ARTIFICIAL TEAR [HYPROMELLOSE] [Concomitant]
     Dosage: APPLY 1 DROP TO EYE; EACH EYE PRN
  6. CALCIUM LACTATE\CALCIUM PHOSPHATE\CHOLECALCIFEROL [Concomitant]
     Active Substance: CALCIUM LACTATE\CALCIUM PHOSPHATE\CHOLECALCIFEROL
     Dosage: VIT 300 MG/ VIT D 400 IU BID
     Route: 048
  7. SINEMET [Concomitant]
     Active Substance: CARBIDOPA\LEVODOPA
     Dosage: 25-250 MG, TAKE 1.5 TABS IN THE MORNING, 1.5 TABS AT NOON AND 1 TAB AT 5PM
  8. COSOPT [Concomitant]
     Active Substance: DORZOLAMIDE HYDROCHLORIDE\TIMOLOL MALEATE
     Dosage: APPLY TO EYE TWO TIMES DAILY, 1 DROP EACH EYE
  9. XALATAN [Concomitant]
     Active Substance: LATANOPROST
     Dosage: 0.005 % OPTHALMIC SOLUTION, PLACE 1 DROP INTO BOTH EYES EVERY EVENING
  10. HYDROCHLOROTHIAZIDE\LISINOPRIL [Concomitant]
     Active Substance: HYDROCHLOROTHIAZIDE\LISINOPRIL
  11. REMERON [Concomitant]
     Active Substance: MIRTAZAPINE
     Dosage: 7.5 MG TABLET, TAKE 1 TABLET BY MOUTH NIGHTLY
  12. PRAVACHOL [Concomitant]
     Active Substance: PRAVASTATIN SODIUM
     Dosage: 40 MILLIGRAM, QD
     Route: 048
  13. SEROQUEL [Concomitant]
     Active Substance: QUETIAPINE FUMARATE
     Dosage: 100 MILLIGRAM, AT BEDTIME
     Route: 048
  14. EXELON [Concomitant]
     Active Substance: RIVASTIGMINE TARTRATE
     Dosage: 13.3 MG/24HR, PLACE 1 PATCH ONTO THE SKIN DAILY

REACTIONS (4)
  - Neoplasm malignant [Unknown]
  - Incorrect dose administered [Recovered/Resolved]
  - Insomnia [Recovered/Resolved]
  - Agitation [Recovered/Resolved]

NARRATIVE: CASE EVENT DATE: 20230301
